FAERS Safety Report 23093609 (Version 2)
Quarter: 2023Q4

REPORT INFORMATION
  Report Type: Spontaneous
  Country: US (occurrence: US)
  Receive Date: 20231023
  Receipt Date: 20231229
  Transmission Date: 20240109
  Serious: Yes (Other)
  Sender: FDA-Public Use
  Company Number: US-REGENERON PHARMACEUTICALS, INC.-2023-127669

PATIENT
  Sex: Female

DRUGS (1)
  1. EYLEA [Suspect]
     Active Substance: AFLIBERCEPT
     Indication: Neovascular age-related macular degeneration
     Dosage: UNK, EVERY 4 WEEKS INTO BOTH EYES (FORMULATION: UNKNOWN)
     Dates: start: 2013

REACTIONS (4)
  - Neovascular age-related macular degeneration [Unknown]
  - Disease progression [Unknown]
  - Pain [Unknown]
  - Therapeutic response decreased [Unknown]
